FAERS Safety Report 8662070 (Version 2)
Quarter: 2012Q4

REPORT INFORMATION
  Report Type: 
  Country: US (occurrence: US)
  Receive Date: 20120712
  Receipt Date: 20121129
  Transmission Date: 20130627
  Serious: No
  Sender: FDA-Public Use
  Company Number: US-ASTRAZENECA-2012SE44908

PATIENT
  Age: 44 Year
  Sex: Female

DRUGS (2)
  1. SYMBICORT PMDI [Suspect]
     Dosage: UNKNOWN
     Route: 055
  2. SEROQUEL [Suspect]
     Route: 048

REACTIONS (5)
  - Dyspnoea exertional [Unknown]
  - Exercise tolerance decreased [Unknown]
  - Adverse event [Unknown]
  - Dyspnoea [Unknown]
  - Drug dose omission [Unknown]
